FAERS Safety Report 4501939-9 (Version None)
Quarter: 2004Q4

REPORT INFORMATION
  Report Type: 
  Country: None (occurrence: None)
  Receive Date: 20041115
  Receipt Date: 20041115
  Transmission Date: 20050328
  Serious: Yes (Other)
  Sender: FDA-Public Use
  Company Number: None

PATIENT
  Age: 16 Year
  Sex: Female
  Weight: 65.7716 kg

DRUGS (3)
  1. PROZAC [Suspect]
     Indication: BIPOLAR DISORDER
     Dosage: ONE     DAY
  2. PAXIL [Suspect]
     Indication: NARCISSISTIC PERSONALITY DISORDER
     Dosage: ONE       DAY
  3. LITHIUM [Concomitant]

REACTIONS (4)
  - AGGRESSION [None]
  - AGITATION [None]
  - MALAISE [None]
  - SOMNOLENCE [None]
